FAERS Safety Report 17652590 (Version 1)
Quarter: 2020Q2

REPORT INFORMATION
  Report Type: Spontaneous
  Country: US (occurrence: US)
  Receive Date: 20200409
  Receipt Date: 20200409
  Transmission Date: 20200713
  Serious: No
  Sender: FDA-Public Use
  Company Number: US-VERTEX PHARMACEUTICALS-2020-007901

PATIENT
  Age: 12 Year
  Sex: Male
  Weight: 34 kg

DRUGS (13)
  1. CREON [Concomitant]
     Active Substance: PANCRELIPASE AMYLASE\PANCRELIPASE LIPASE\PANCRELIPASE PROTEASE
     Dosage: 12/38/60K
  2. PULMOZYME [Concomitant]
     Active Substance: DORNASE ALFA
     Dosage: VIA NEBULIZER DAILY
  3. VITAMIN D3 [Concomitant]
     Active Substance: CHOLECALCIFEROL
     Dosage: POWDER DAILY
  4. RHINOCORT ALLERGY [Concomitant]
     Active Substance: BUDESONIDE
     Dosage: SPRAY
  5. VITAMIN A [RETINOL] [Concomitant]
     Active Substance: RETINOL
     Dosage: 10 UNIT DAILY
  6. FLONASE ALLERGY RELIEF [Concomitant]
     Active Substance: FLUTICASONE PROPIONATE
     Dosage: UNK
  7. TRIKAFTA [Suspect]
     Active Substance: ELEXACAFTOR\IVACAFTOR\TEZACAFTOR
     Indication: CYSTIC FIBROSIS
     Dosage: ELEXACAFTOR 100 MG, TEZACAFTOR 50 MG, IVACAFTOR 75 MG AM; IVACAFTOR 150 MG PM
     Route: 048
     Dates: start: 202003
  8. PYRIDOXINE HCL [Concomitant]
     Active Substance: PYRIDOXINE HYDROCHLORIDE
     Dosage: POWDER
  9. RANITIDINE HCL [Concomitant]
     Active Substance: RANITIDINE HYDROCHLORIDE
     Dosage: UNK, QD
  10. MUPIROCIN. [Concomitant]
     Active Substance: MUPIROCIN
     Dosage: OINTMENT AS NEEDED
  11. VITAMIN E [Concomitant]
     Active Substance: .ALPHA.-TOCOPHEROL
     Dosage: 1000 UNIT DAILY
  12. XOPENEX [Concomitant]
     Active Substance: LEVALBUTEROL HYDROCHLORIDE
     Dosage: VIA NEBULIZER DAILY
  13. PULMICORT TURBUHALER [Concomitant]
     Active Substance: BUDESONIDE
     Dosage: AMPLUE DAILY

REACTIONS (1)
  - Constipation [Not Recovered/Not Resolved]

NARRATIVE: CASE EVENT DATE: 202003
